FAERS Safety Report 8424651-2 (Version None)
Quarter: 2012Q2

REPORT INFORMATION
  Report Type: 
  Country: None (occurrence: None)
  Receive Date: 20120611
  Receipt Date: 20120601
  Transmission Date: 20120825
  Serious: Yes (Other)
  Sender: FDA-Public Use
  Company Number: US-BIOGENIDEC-2012BI017252

PATIENT
  Age: 73 Year
  Sex: Female

DRUGS (15)
  1. PREDNISONE [Concomitant]
     Route: 048
     Dates: start: 20100630
  2. LIPITOR [Concomitant]
     Route: 048
     Dates: start: 20080801
  3. BONIVA [Concomitant]
     Route: 048
     Dates: start: 20100323
  4. TYSABRI [Suspect]
     Indication: MULTIPLE SCLEROSIS
     Route: 042
     Dates: start: 20061128, end: 20090923
  5. TYSABRI [Suspect]
     Route: 042
     Dates: start: 20100602
  6. GABAPENTIN [Concomitant]
     Route: 048
     Dates: start: 20100323
  7. CARBAMAZEPINE [Concomitant]
     Route: 048
     Dates: start: 20091201
  8. MULTI-VITAMIN [Concomitant]
     Route: 048
     Dates: start: 20080801
  9. ENABLEX [Concomitant]
     Route: 048
     Dates: start: 20110804
  10. VIACTIV MULTI-VITAMIN [Concomitant]
     Route: 048
     Dates: start: 20080801
  11. IBUPROFEN (ADVIL) [Concomitant]
     Indication: PAIN
     Route: 048
     Dates: start: 20101101
  12. AMBIEN [Concomitant]
     Route: 048
     Dates: start: 20091019
  13. BACLOFEN [Concomitant]
     Route: 048
     Dates: start: 20080801
  14. LISINOPRIL AND HYDROCHLOROTHIAZIDE [Concomitant]
     Route: 048
     Dates: start: 20080801
  15. VITAMIN D [Concomitant]
     Route: 048
     Dates: start: 20110308

REACTIONS (1)
  - MALIGNANT FIBROUS HISTIOCYTOMA [None]
